FAERS Safety Report 9395458 (Version 3)
Quarter: 2016Q3

REPORT INFORMATION
  Report Type: Report from Study
  Country: CN (occurrence: CN)
  Receive Date: 20130711
  Receipt Date: 20160915
  Transmission Date: 20161109
  Serious: Yes (Other)
  Sender: FDA-Public Use
  Company Number: CN-ASTELLAS-2013US007139

PATIENT
  Age: 60 Year
  Sex: Female

DRUGS (3)
  1. PACLITAXEL. [Suspect]
     Active Substance: PACLITAXEL
     Indication: OESOPHAGEAL SQUAMOUS CELL CARCINOMA
     Dosage: 135 MG/M2, DAY 1 EVERY 4 WEEKS FOR TWO CYCLES
     Route: 042
  2. CISPLATIN. [Suspect]
     Active Substance: CISPLATIN
     Indication: OESOPHAGEAL SQUAMOUS CELL CARCINOMA
     Dosage: 20 MG/M2, DAY 1-3 EVERY 4 WEEKS FOR 2 CYCLES
     Route: 042
  3. ERLOTINIB [Suspect]
     Active Substance: ERLOTINIB
     Indication: OESOPHAGEAL SQUAMOUS CELL CARCINOMA
     Route: 048

REACTIONS (1)
  - Haematotoxicity [Unknown]
